FAERS Safety Report 12469622 (Version 2)
Quarter: 2016Q3

REPORT INFORMATION
  Report Type: Spontaneous
  Country: GB (occurrence: GB)
  Receive Date: 20160615
  Receipt Date: 20160729
  Transmission Date: 20161109
  Serious: Yes (Life-Threatening, Other)
  Sender: FDA-Public Use
  Company Number: GB-ABBVIE-16P-167-1653555-00

PATIENT
  Age: 58 Year
  Sex: Female

DRUGS (4)
  1. ZAPONEX [Suspect]
     Active Substance: CLOZAPINE
     Route: 048
     Dates: start: 20150813, end: 201601
  2. VALPROATE SODIUM. [Suspect]
     Active Substance: VALPROATE SODIUM
     Indication: PRODUCT USED FOR UNKNOWN INDICATION
     Route: 065
     Dates: end: 201605
  3. ZAPONEX [Suspect]
     Active Substance: CLOZAPINE
     Route: 048
     Dates: start: 20160404, end: 20160520
  4. ZAPONEX [Suspect]
     Active Substance: CLOZAPINE
     Indication: SCHIZOPHRENIA
     Route: 048
     Dates: start: 20140829, end: 20150808

REACTIONS (7)
  - Leukopenia [Recovered/Resolved]
  - Neutrophil count decreased [Recovered/Resolved]
  - Drug monitoring procedure incorrectly performed [Unknown]
  - Nausea [Unknown]
  - Agranulocytosis [Recovered/Resolved]
  - Neutropenia [Recovered/Resolved]
  - Vomiting [Unknown]

NARRATIVE: CASE EVENT DATE: 201605
